APPROVED DRUG PRODUCT: BUPROPION HYDROCHLORIDE
Active Ingredient: BUPROPION HYDROCHLORIDE
Strength: 150MG
Dosage Form/Route: TABLET, EXTENDED RELEASE;ORAL
Application: A077475 | Product #001 | TE Code: AB2
Applicant: SANDOZ INC
Approved: Mar 12, 2008 | RLD: No | RS: No | Type: RX